FAERS Safety Report 5409641-6 (Version None)
Quarter: 2007Q3

REPORT INFORMATION
  Report Type: 
  Country: None (occurrence: None)
  Receive Date: 20070807
  Receipt Date: 20070807
  Transmission Date: 20080115
  Serious: Yes (Death)
  Sender: FDA-Public Use
  Company Number: None

PATIENT
  Sex: Female

DRUGS (2)
  1. FLUDARABINE PHOSPHATE [Suspect]
     Indication: STEM CELL TRANSPLANT
     Dosage: 54 MG DAILY IV DRIP
     Route: 041
     Dates: start: 20070223, end: 20070227
  2. THIOTEPA [Suspect]
     Dosage: 375 MG DAILY IV DRIP
     Route: 041
     Dates: start: 20070223, end: 20070224

REACTIONS (2)
  - CRYPTOGENIC ORGANISING PNEUMONIA [None]
  - FATIGUE [None]
